FAERS Safety Report 15750856 (Version 1)
Quarter: 2018Q4

REPORT INFORMATION
  Report Type: Spontaneous
  Country: US (occurrence: US)
  Receive Date: 20181221
  Receipt Date: 20181221
  Transmission Date: 20190205
  Serious: Yes (Other)
  Sender: FDA-Public Use
  Company Number: US-CORDEN PHARMA LATINA S.P.A.-US-2018COR000161

PATIENT

DRUGS (6)
  1. IFOSFAMIDE. [Suspect]
     Active Substance: IFOSFAMIDE
     Indication: EWING^S SARCOMA METASTATIC
     Dosage: 9 G/M2 ALTERNATING WITH CYCLOPHOSPHAMIDE AND ETOPOSIDE FOR 14 CYCLES
     Route: 065
  2. VINCRISTINE [Suspect]
     Active Substance: VINCRISTINE
     Indication: EWING^S SARCOMA METASTATIC
     Dosage: UNK
     Route: 065
  3. RADIOTHERAPY [Suspect]
     Active Substance: RADIATION THERAPY
     Indication: EWING^S SARCOMA METASTATIC
     Dosage: TO THE SITE OF THE PRIMARY TUMOR AT 5400 CGY WITH AN ADDITIONAL DOSE OF 6760 CGY
     Route: 065
  4. CYCLOPHOSPHAMIDE. [Suspect]
     Active Substance: CYCLOPHOSPHAMIDE
     Indication: EWING^S SARCOMA METASTATIC
     Dosage: 1.2 G/M2 ALTERNATING WITH IFOSFAMIDE AND ETOPOSIDE FOR 14 CYCLES
     Route: 065
  5. ETOPOSIDE. [Suspect]
     Active Substance: ETOPOSIDE
     Indication: EWING^S SARCOMA METASTATIC
     Dosage: 500 MG/M2 FOR 14 CYCLES ALTERNATING WITH IFOSFAMIDE AND CYCLOPHOPHAMIDE
     Route: 065
  6. DOXORUBICIN [Suspect]
     Active Substance: DOXORUBICIN
     Indication: EWING^S SARCOMA METASTATIC
     Dosage: 75 MG/M2, UNK
     Route: 065

REACTIONS (3)
  - Amenorrhoea [Not Recovered/Not Resolved]
  - Premature menopause [Not Recovered/Not Resolved]
  - Uterine injury [Not Recovered/Not Resolved]
